FAERS Safety Report 25707297 (Version 1)
Quarter: 2025Q3

REPORT INFORMATION
  Report Type: Spontaneous
  Country: US (occurrence: US)
  Receive Date: 20250820
  Receipt Date: 20250820
  Transmission Date: 20251021
  Serious: No
  Sender: Alpha Cognition
  Company Number: US-ALPHA COGNITION-2025-ZUN-00015

PATIENT

DRUGS (2)
  1. ZUNVEYL [Suspect]
     Active Substance: GALANTAMINE BENZOATE
     Indication: Dementia
     Dosage: 5 MG (FOR A MONTH), BID
     Route: 048
  2. ZUNVEYL [Suspect]
     Active Substance: GALANTAMINE BENZOATE
     Dosage: 10 MG (FOR 3 AND HALF WEEKS), BID
     Route: 048

REACTIONS (1)
  - Vomiting [Not Recovered/Not Resolved]
